FAERS Safety Report 8602323-9 (Version None)
Quarter: 2012Q3

REPORT INFORMATION
  Report Type: 
  Country: None (occurrence: None)
  Receive Date: 20120817
  Receipt Date: 20120807
  Transmission Date: 20120928
  Serious: Yes (Hospitalization)
  Sender: FDA-Public Use
  Company Number: DE-UCBSA-063587

PATIENT
  Sex: Female

DRUGS (11)
  1. ENBREL [Suspect]
     Dates: start: 20100101, end: 20100501
  2. VITAMIN E [Concomitant]
     Indication: OSTEOPOROSIS
     Dates: start: 20080101
  3. METHOTREXATE [Suspect]
     Dates: start: 20110527, end: 20110101
  4. CERTOLIZUMAB [Suspect]
     Indication: RHEUMATOID ARTHRITIS
     Route: 058
     Dates: start: 20110501, end: 20111107
  5. ALENDRONATE SODIUM [Concomitant]
     Indication: OSTEOPOROSIS
     Dates: start: 20080101
  6. METHOTREXATE [Suspect]
     Indication: RHEUMATOID ARTHRITIS
     Dates: start: 20110928, end: 20110101
  7. CALCIUM D [Concomitant]
     Indication: OSTEOPOROSIS
     Dates: start: 20080101
  8. METHOTREXATE [Suspect]
     Dates: start: 20080101, end: 20090101
  9. METHOTREXATE [Suspect]
     Dates: start: 20020801
  10. ENBREL [Suspect]
     Indication: RHEUMATOID ARTHRITIS
     Dates: start: 20110901, end: 20111001
  11. PROTELOS [Concomitant]
     Indication: OSTEOPOROSIS
     Dates: start: 20100101

REACTIONS (1)
  - ULCERATIVE KERATITIS [None]
